FAERS Safety Report 9102559 (Version 12)
Quarter: 2013Q3

REPORT INFORMATION
  Report Type: Report from Study
  Country: US (occurrence: US)
  Receive Date: 20130219
  Receipt Date: 20130830
  Transmission Date: 20140515
  Serious: No
  Sender: FDA-Public Use
  Company Number: US-VERTEX PHARMACEUTICALS INC.-2013-002225

PATIENT
  Age: 59 Year
  Sex: Male
  Weight: 89 kg

DRUGS (6)
  1. VX-950 (TELAPREVIR) [Suspect]
     Indication: HEPATITIS C
     Dosage: 750 MG, TID
     Route: 048
     Dates: start: 20130207, end: 20130501
  2. COPEGUS [Suspect]
     Indication: HEPATITIS C
     Dosage: 600 MG, BID
     Route: 048
     Dates: start: 20130207, end: 20130419
  3. COPEGUS [Suspect]
     Dosage: 200 MG AM, 400 MG PM, QD
     Route: 048
     Dates: start: 20130419
  4. COPEGUS [Suspect]
     Dosage: 800 MG, QD
     Route: 048
  5. PEGASYS [Suspect]
     Indication: HEPATITIS C
     Dosage: 180 ?G
     Route: 058
     Dates: start: 20130207
  6. FISH OIL [Concomitant]

REACTIONS (27)
  - Headache [Not Recovered/Not Resolved]
  - Pyrexia [Not Recovered/Not Resolved]
  - Mood altered [Unknown]
  - Memory impairment [Recovered/Resolved]
  - Somnolence [Recovered/Resolved]
  - Insomnia [Recovered/Resolved]
  - Weight fluctuation [Recovered/Resolved]
  - Dyspepsia [Not Recovered/Not Resolved]
  - Decreased appetite [Not Recovered/Not Resolved]
  - Dry mouth [Not Recovered/Not Resolved]
  - Hypophagia [Recovered/Resolved]
  - Myalgia [Not Recovered/Not Resolved]
  - Pain in extremity [Not Recovered/Not Resolved]
  - Lethargy [Not Recovered/Not Resolved]
  - Feeling abnormal [Recovered/Resolved]
  - Aggression [Recovered/Resolved]
  - Irritability [Recovered/Resolved]
  - Alopecia [Not Recovered/Not Resolved]
  - Constipation [Recovered/Resolved]
  - Fatigue [Not Recovered/Not Resolved]
  - Asthenia [Recovered/Resolved]
  - Rash macular [Not Recovered/Not Resolved]
  - Rash pruritic [Not Recovered/Not Resolved]
  - Anaemia [Recovered/Resolved]
  - Nausea [Recovered/Resolved]
  - Vomiting [Not Recovered/Not Resolved]
  - Dysgeusia [Not Recovered/Not Resolved]
